FAERS Safety Report 4882278-3 (Version None)
Quarter: 2006Q1

REPORT INFORMATION
  Report Type: 
  Country: None (occurrence: None)
  Receive Date: 20060112
  Receipt Date: 20060104
  Transmission Date: 20060701
  Serious: Yes (Hospitalization)
  Sender: FDA-Public Use
  Company Number: HQWYE186504JAN06

PATIENT
  Age: 16 Year
  Sex: Female

DRUGS (6)
  1. ADVIL COLD AND SINUS [Suspect]
     Indication: NASOPHARYNGITIS
     Dates: start: 20051207, end: 20051207
  2. ADVIL [Suspect]
     Indication: NASOPHARYNGITIS
     Dates: start: 20051207
  3. CELEXA [Suspect]
     Indication: DEPRESSION
     Dosage: 40 MG AT BEDTIME, ORAL
     Route: 048
     Dates: start: 20050801, end: 20051207
  4. ECHINACEA (ECHINACEA EXTRACT, EXTRACT) [Suspect]
     Indication: NASOPHARYNGITIS
     Dates: start: 20051207, end: 20051207
  5. CONCERTA (METHYLPHENIDATE) [Concomitant]
  6. VITAMIN C (ASCORBIC ACID) [Concomitant]

REACTIONS (7)
  - BLOOD PRESSURE INCREASED [None]
  - DRUG INTERACTION [None]
  - EYE DISORDER [None]
  - GRAND MAL CONVULSION [None]
  - HEART RATE INCREASED [None]
  - MUSCLE TWITCHING [None]
  - RESTLESSNESS [None]
